FAERS Safety Report 6698006-5 (Version None)
Quarter: 2010Q2

REPORT INFORMATION
  Report Type: 
  Country: None (occurrence: None)
  Receive Date: 20100427
  Receipt Date: 20100416
  Transmission Date: 20101027
  Serious: Yes (Hospitalization)
  Sender: FDA-Public Use
  Company Number: US-JNJFOC-20100308381

PATIENT
  Sex: Male
  Weight: 47.99 kg

DRUGS (5)
  1. INFLIXIMAB [Suspect]
     Indication: CROHN'S DISEASE
     Route: 042
  2. THALIDOMIDE [Concomitant]
  3. TYLENOL-500 [Concomitant]
  4. MAALOX [Concomitant]
  5. MERCAPTOPURINE [Concomitant]

REACTIONS (2)
  - MALNUTRITION [None]
  - WEIGHT DECREASED [None]
